FAERS Safety Report 9323943 (Version 1)
Quarter: 2013Q2

REPORT INFORMATION
  Report Type: Spontaneous
  Country: GB (occurrence: GB)
  Receive Date: 20130603
  Receipt Date: 20130603
  Transmission Date: 20140414
  Serious: Yes (Hospitalization)
  Sender: FDA-Public Use
  Company Number: GB-JNJFOC-20130516257

PATIENT
  Age: 5 Year
  Sex: Male
  Weight: 15.25 kg

DRUGS (23)
  1. DOXORUBICIN HYDROCHLORIDE [Suspect]
     Indication: NEOPLASM MALIGNANT
     Route: 042
     Dates: start: 20120901
  2. DOXORUBICIN HYDROCHLORIDE [Suspect]
     Indication: NEOPLASM MALIGNANT
     Route: 042
     Dates: start: 20120810
  3. DOXORUBICIN HYDROCHLORIDE [Suspect]
     Indication: NEOPLASM MALIGNANT
     Route: 042
     Dates: start: 20120721
  4. DACTINOMYCIN [Suspect]
     Indication: NEOPLASM MALIGNANT
     Route: 042
     Dates: start: 20120831
  5. DACTINOMYCIN [Suspect]
     Indication: NEOPLASM MALIGNANT
     Route: 042
     Dates: start: 20120809
  6. DACTINOMYCIN [Suspect]
     Indication: NEOPLASM MALIGNANT
     Route: 042
     Dates: start: 20120720
  7. IFOSFAMIDE [Suspect]
     Indication: NEOPLASM MALIGNANT
     Dosage: DAY 1 AND 2 OF EACH CYCLE
     Route: 042
     Dates: start: 20120720
  8. IFOSFAMIDE [Suspect]
     Indication: NEOPLASM MALIGNANT
     Route: 042
     Dates: start: 20120901
  9. IFOSFAMIDE [Suspect]
     Indication: NEOPLASM MALIGNANT
     Route: 042
     Dates: start: 20120810
  10. VINCRISTINE SULFATE [Suspect]
     Indication: NEOPLASM MALIGNANT
     Route: 042
     Dates: start: 20120720
  11. VINCRISTINE SULFATE [Suspect]
     Indication: NEOPLASM MALIGNANT
     Route: 042
     Dates: start: 20120816
  12. VINCRISTINE SULFATE [Suspect]
     Indication: NEOPLASM MALIGNANT
     Route: 042
     Dates: start: 20120831
  13. GRANISETRON [Concomitant]
     Route: 065
  14. GRANISETRON [Concomitant]
     Route: 065
     Dates: start: 20120723
  15. CHLORHEXIDINE [Concomitant]
     Route: 065
  16. CO-TRIMOXAZOLE [Concomitant]
     Route: 065
     Dates: start: 20120724
  17. METOCLOPRAMIDE [Concomitant]
     Route: 065
     Dates: start: 20120720
  18. METOCLOPRAMIDE [Concomitant]
     Route: 065
     Dates: start: 20121207
  19. MOVICOL [Concomitant]
     Dosage: 1 UNIT NOT REPORTED
     Route: 065
     Dates: start: 20120730
  20. ONDANSETRON [Concomitant]
     Route: 065
     Dates: start: 20121207
  21. ORAMORPH [Concomitant]
     Route: 065
     Dates: start: 20120725
  22. PARACETAMOL [Concomitant]
     Route: 065
     Dates: start: 20121208
  23. PARACETAMOL [Concomitant]
     Route: 065
     Dates: start: 20120705

REACTIONS (2)
  - Febrile neutropenia [Recovered/Resolved]
  - Hypophagia [Unknown]
